FAERS Safety Report 4840363-6 (Version None)
Quarter: 2005Q4

REPORT INFORMATION
  Report Type: 
  Country: None (occurrence: None)
  Receive Date: 20051025
  Receipt Date: 20050314
  Transmission Date: 20060501
  Serious: Yes (Hospitalization)
  Sender: FDA-Public Use
  Company Number: US-JNJFOC-20050105710

PATIENT
  Age: 32 Year
  Sex: Female

DRUGS (1)
  1. FLEXERIL [Suspect]
     Indication: SUICIDE ATTEMPT
     Dosage: 700 TO 800 MG
     Dates: start: 20050120, end: 20050120

REACTIONS (1)
  - INTENTIONAL DRUG MISUSE [None]
